FAERS Safety Report 23640233 (Version 1)
Quarter: 2024Q1

REPORT INFORMATION
  Report Type: Report from Study
  Country: CA (occurrence: CA)
  Receive Date: 20240317
  Receipt Date: 20240317
  Transmission Date: 20240409
  Serious: Yes (Other)
  Sender: FDA-Public Use
  Company Number: CA-JNJFOC-20240322798

PATIENT
  Age: 77 Year
  Sex: Female
  Weight: 76 kg

DRUGS (1)
  1. STELARA [Suspect]
     Active Substance: USTEKINUMAB
     Indication: Colitis ulcerative
     Route: 058
     Dates: start: 20240208

REACTIONS (2)
  - Neuropathy peripheral [Recovering/Resolving]
  - Off label use [Unknown]
